FAERS Safety Report 9136047 (Version 1)
Quarter: 2013Q1

REPORT INFORMATION
  Report Type: Spontaneous
  Country: BR (occurrence: None)
  Receive Date: 20130215
  Receipt Date: 20130215
  Transmission Date: 20140127
  Serious: Yes (Death)
  Sender: FDA-Public Use
  Company Number: 2013BR0061

PATIENT
  Sex: Male
  Weight: 9.6 kg

DRUGS (1)
  1. ORFADIN (NITISINONE) [Suspect]
     Indication: TYROSINAEMIA
     Dosage: (10 MG, 1 IN 1 D)
     Dates: start: 20110822

REACTIONS (2)
  - Sepsis [None]
  - Urinary tract infection [None]
